FAERS Safety Report 19916961 (Version 1)
Quarter: 2021Q4

REPORT INFORMATION
  Report Type: Spontaneous
  Country: US (occurrence: US)
  Receive Date: 20211004
  Receipt Date: 20211004
  Transmission Date: 20220303
  Serious: Yes (Hospitalization)
  Sender: FDA-Public Use
  Company Number: None

PATIENT
  Age: 65 Year
  Sex: Male

DRUGS (1)
  1. TREMFYA [Suspect]
     Active Substance: GUSELKUMAB
     Indication: Psoriasis
     Dosage: ?          OTHER FREQUENCY:Q8WK;
     Route: 058
     Dates: start: 20200516

REACTIONS (2)
  - Myocardial infarction [None]
  - Drug hypersensitivity [None]

NARRATIVE: CASE EVENT DATE: 20210928
